FAERS Safety Report 22036024 (Version 1)
Quarter: 2023Q1

REPORT INFORMATION
  Report Type: Report from Study
  Country: EG (occurrence: EG)
  Receive Date: 20230224
  Receipt Date: 20230224
  Transmission Date: 20230418
  Serious: Yes (Death, Hospitalization, Other)
  Sender: FDA-Public Use
  Company Number: EG-002147023-NVSC2023EG036459

PATIENT

DRUGS (4)
  1. RUXOLITINIB [Suspect]
     Active Substance: RUXOLITINIB
     Indication: Acute myeloid leukaemia
     Dosage: 2 DOSAGE FORM PER DAYS (5 MG TABLET)
     Route: 048
     Dates: start: 202111, end: 202206
  2. RUXOLITINIB [Suspect]
     Active Substance: RUXOLITINIB
     Dosage: 2 DOSAGE FORM PER DAYS (15 MG TABLET)
     Route: 048
     Dates: start: 202206, end: 202206
  3. RUXOLITINIB [Suspect]
     Active Substance: RUXOLITINIB
     Dosage: 2 DOSAGE FORM PER DAY (5 MG TABLET)
     Route: 048
     Dates: start: 202211
  4. PREDNISOLONE [Concomitant]
     Active Substance: PREDNISOLONE
     Indication: Bone marrow transplant
     Dosage: 3 DOSAGE FORM, QD (60 MG)
     Route: 048
     Dates: start: 202211

REACTIONS (15)
  - Drug resistance [Not Recovered/Not Resolved]
  - Dyspnoea [Not Recovered/Not Resolved]
  - Death [Fatal]
  - Oxygen saturation decreased [Not Recovered/Not Resolved]
  - Diabetes mellitus [Unknown]
  - Eye discharge [Unknown]
  - Rhinorrhoea [Unknown]
  - Hypertension [Unknown]
  - Product use in unapproved indication [Unknown]
  - Pulmonary fibrosis [Not Recovered/Not Resolved]
  - Hepatic function abnormal [Not Recovered/Not Resolved]
  - Platelet count decreased [Unknown]
  - Lung abscess [Not Recovered/Not Resolved]
  - Myeloid leukaemia [Recovered/Resolved]
  - Wheezing [Unknown]

NARRATIVE: CASE EVENT DATE: 20211101
